FAERS Safety Report 22007840 (Version 1)
Quarter: 2023Q1

REPORT INFORMATION
  Report Type: Report from Study
  Country: US (occurrence: US)
  Receive Date: 20230218
  Receipt Date: 20230218
  Transmission Date: 20230418
  Serious: Yes (Other)
  Sender: FDA-Public Use
  Company Number: US-ABBVIE-4311054

PATIENT
  Sex: Female

DRUGS (15)
  1. RINVOQ [Suspect]
     Active Substance: UPADACITINIB
     Indication: Drug therapy
     Route: 048
  2. FLOVENT HFA AER 44MCG/ACT [Concomitant]
     Indication: Product used for unknown indication
  3. PREDNISONE [Concomitant]
     Active Substance: PREDNISONE
     Indication: Product used for unknown indication
  4. FOLIC ACID TAB 1MG [Concomitant]
     Indication: Product used for unknown indication
  5. DULOXETINE H CPE 30MG [Concomitant]
     Indication: Product used for unknown indication
  6. BUPROPION HC TB1 150MG [Concomitant]
     Indication: Product used for unknown indication
  7. FLUTICASONE H PAC 20MEQ [Concomitant]
     Indication: Product used for unknown indication
  8. DICLOFENAC S TBE 75MG [Concomitant]
     Indication: Product used for unknown indication
  9. ROSUVASTATIN [Concomitant]
     Active Substance: ROSUVASTATIN
     Indication: Product used for unknown indication
  10. ATORVASTATIN TAB 20MG [Concomitant]
     Indication: Product used for unknown indication
  11. OXYCODONE HC TAB 5MG [Concomitant]
     Indication: Product used for unknown indication
  12. ALBUTEROL SU AER [Concomitant]
     Indication: Product used for unknown indication
  13. VITAMIN B-12 TAB 500MCG [Concomitant]
     Indication: Product used for unknown indication
  14. LEVOCETIRIZI TAB 5MG [Concomitant]
     Indication: Product used for unknown indication
  15. ATORVASTATIN TAB 10MG [Concomitant]
     Indication: Product used for unknown indication

REACTIONS (2)
  - Knee operation [Unknown]
  - Swelling [Unknown]
